FAERS Safety Report 5637775-X (Version None)
Quarter: 2008Q1

REPORT INFORMATION
  Report Type: 
  Country: None (occurrence: None)
  Receive Date: 20080219
  Receipt Date: 20080206
  Transmission Date: 20080703
  Serious: Yes (Death)
  Sender: FDA-Public Use
  Company Number: 1022556-2008-00070

PATIENT
  Age: 28 Year
  Sex: Male

DRUGS (6)
  1. UNISOM [Suspect]
  2. OXYCODONE HCL [Concomitant]
  3. HYDROCODONE BITARTRATE [Concomitant]
  4. KIAZEPAM [Concomitant]
  5. TEMAZEPAM [Concomitant]
  6. ALPRAZOLAM [Concomitant]

REACTIONS (2)
  - ACCIDENTAL OVERDOSE [None]
  - DRUG TOXICITY [None]
